FAERS Safety Report 9692446 (Version 1)
Quarter: 2013Q4

REPORT INFORMATION
  Report Type: Spontaneous
  Country: US (occurrence: US)
  Receive Date: 20131118
  Receipt Date: 20131118
  Transmission Date: 20140711
  Serious: No
  Sender: FDA-Public Use
  Company Number: US-PFIZER INC-2013323925

PATIENT
  Age: 69 Year
  Sex: Female
  Weight: 62.59 kg

DRUGS (12)
  1. LYRICA [Suspect]
     Indication: FIBROMYALGIA
     Dosage: UNK, DAILY
     Dates: start: 20131107
  2. LYRICA [Suspect]
     Dosage: UNK, 2X/DAY
     Dates: start: 201311
  3. FOLIC ACID [Suspect]
     Dosage: UNK
  4. IBUPROFEN [Suspect]
     Indication: PAIN
     Dosage: 800 MG, 2X/DAY
  5. LISINOPRIL [Suspect]
     Indication: BLOOD PRESSURE ABNORMAL
     Dosage: UNK
  6. METHOTREXATE SODIUM [Suspect]
     Indication: PAIN
     Dosage: UNK
  7. TRAMADOL HCL [Suspect]
     Indication: PAIN
     Dosage: UNK
  8. CYMBALTA [Suspect]
     Indication: RHEUMATOID ARTHRITIS
     Dosage: UNK
  9. CYMBALTA [Suspect]
     Indication: FIBROMYALGIA
  10. PRILOSEC [Suspect]
     Indication: PROPHYLAXIS
     Dosage: UNK
  11. ESTRACE [Suspect]
     Indication: HORMONE THERAPY
     Dosage: UNK
  12. REQUIP [Suspect]
     Indication: RESTLESS LEGS SYNDROME
     Dosage: UNK

REACTIONS (1)
  - Pain [Not Recovered/Not Resolved]
